FAERS Safety Report 4698342-8 (Version None)
Quarter: 2005Q2

REPORT INFORMATION
  Report Type: 
  Country: None (occurrence: None)
  Receive Date: 20050621
  Receipt Date: 20050609
  Transmission Date: 20051028
  Serious: Yes (Other)
  Sender: FDA-Public Use
  Company Number: 2005087394

PATIENT
  Age: 56 Year
  Sex: Male
  Weight: 86 kg

DRUGS (2)
  1. EPLERENONE (EPLERENONE) [Suspect]
     Indication: HYPERADRENALISM
     Dosage: 150 MG ORAL
     Route: 048
  2. SPIRONOLACTONE [Concomitant]

REACTIONS (1)
  - OEDEMA MOUTH [None]
